FAERS Safety Report 13459360 (Version 1)
Quarter: 2017Q2

REPORT INFORMATION
  Report Type: Spontaneous
  Country: CA (occurrence: CA)
  Receive Date: 20170419
  Receipt Date: 20170419
  Transmission Date: 20170830
  Serious: Yes (Other)
  Sender: FDA-Public Use
  Company Number: PHHY2017CA053930

PATIENT
  Sex: Female

DRUGS (1)
  1. CEFPROZIL SANDOZ [Suspect]
     Active Substance: CEFPROZIL
     Indication: LOWER RESPIRATORY TRACT INFECTION
     Dosage: 500 MG, BID
     Route: 048

REACTIONS (6)
  - Coeliac disease [None]
  - Headache [None]
  - Musculoskeletal stiffness [None]
  - Fatigue [None]
  - Condition aggravated [Unknown]
  - Peripheral swelling [None]
